FAERS Safety Report 12210189 (Version 5)
Quarter: 2016Q3

REPORT INFORMATION
  Report Type: Spontaneous
  Country: US (occurrence: US)
  Receive Date: 20160325
  Receipt Date: 20160824
  Transmission Date: 20161109
  Serious: Yes (Other)
  Sender: FDA-Public Use
  Company Number: US-PFIZER INC-2016169201

PATIENT
  Age: 75 Year
  Sex: Female

DRUGS (2)
  1. LATANOPROST. [Suspect]
     Active Substance: LATANOPROST
     Indication: GLAUCOMA
     Dosage: UNK
  2. LATANOPROST. [Suspect]
     Active Substance: LATANOPROST
     Dosage: 1 GTT EACH EYE, AT HS
     Route: 047
     Dates: start: 20130910

REACTIONS (12)
  - Eye irritation [Recovered/Resolved]
  - Foreign body sensation in eyes [Unknown]
  - Ocular hyperaemia [Recovered/Resolved]
  - Dizziness [Unknown]
  - Eye pain [Unknown]
  - Dry eye [Unknown]
  - Product contamination [Unknown]
  - Eyelid margin crusting [Unknown]
  - Lacrimation increased [Unknown]
  - Eye irritation [Unknown]
  - Eye pruritus [Unknown]
  - Eye inflammation [Recovered/Resolved]

NARRATIVE: CASE EVENT DATE: 20160201
